FAERS Safety Report 5445662-5 (Version None)
Quarter: 2007Q3

REPORT INFORMATION
  Report Type: 
  Country: None (occurrence: None)
  Receive Date: 20070904
  Receipt Date: 20070828
  Transmission Date: 20080115
  Serious: Yes (Death, Hospitalization)
  Sender: FDA-Public Use
  Company Number: 163-20785-07070093

PATIENT
  Age: 77 Year
  Sex: Male

DRUGS (3)
  1. THALOMID [Suspect]
     Indication: MULTIPLE MYELOMA
     Dosage: 100 MG, Q 28 DAYS, ORAL, 200 MG, DAILY, ORAL
     Route: 048
     Dates: start: 20051107, end: 20060301
  2. THALOMID [Suspect]
     Indication: MULTIPLE MYELOMA
     Dosage: 100 MG, Q 28 DAYS, ORAL, 200 MG, DAILY, ORAL
     Route: 048
     Dates: start: 20060320, end: 20070601
  3. THALOMID [Suspect]

REACTIONS (6)
  - DIZZINESS [None]
  - FATIGUE [None]
  - HYPERSOMNIA [None]
  - NEUTROPENIA [None]
  - PNEUMONIA [None]
  - RESPIRATORY FAILURE [None]
